FAERS Safety Report 24384400 (Version 1)
Quarter: 2024Q4

REPORT INFORMATION
  Report Type: Other
  Country: CO (occurrence: CO)
  Receive Date: 20241001
  Receipt Date: 20241001
  Transmission Date: 20250114
  Serious: Yes (Life-Threatening)
  Sender: B BRAUN
  Company Number: CO-B.Braun Medical Inc.-2162265

PATIENT
  Age: 61 Year
  Sex: Male

DRUGS (13)
  1. MEROPENEM [Suspect]
     Active Substance: MEROPENEM
     Indication: Antibiotic therapy
  2. VANCOMYCIN [Suspect]
     Active Substance: VANCOMYCIN
  3. Exchange resins [Concomitant]
  4. CALCIUM GLUCONATE [Concomitant]
     Active Substance: CALCIUM GLUCONATE
  5. Polarizing solution [Concomitant]
  6. Intravenous fluids [Concomitant]
  7. PYRIDOXINE [Concomitant]
     Active Substance: PYRIDOXINE
  8. ETHAMBUTOL [Concomitant]
     Active Substance: ETHAMBUTOL HYDROCHLORIDE
  9. PYRAZINAMIDE [Concomitant]
     Active Substance: PYRAZINAMIDE
  10. RIFAMPIN [Concomitant]
     Active Substance: RIFAMPIN
  11. ISONIAZID [Concomitant]
     Active Substance: ISONIAZID
  12. ASPIRIN [Concomitant]
     Active Substance: ASPIRIN
  13. CASPOFUNGIN [Suspect]
     Active Substance: CASPOFUNGIN

REACTIONS (1)
  - Drug ineffective [Unknown]
